FAERS Safety Report 15157486 (Version 1)
Quarter: 2018Q3

REPORT INFORMATION
  Report Type: Spontaneous
  Country: US (occurrence: US)
  Receive Date: 20180718
  Receipt Date: 20180718
  Transmission Date: 20181010
  Serious: Yes (Hospitalization)
  Sender: FDA-Public Use
  Company Number: US-TEVA-2018-US-926396

PATIENT
  Sex: Female
  Weight: 70.37 kg

DRUGS (1)
  1. VENLAFAXINE HYDROCHLORIDE. [Suspect]
     Active Substance: VENLAFAXINE HYDROCHLORIDE
     Indication: DEPRESSION
     Dosage: 300 MILLIGRAM DAILY; EVERY MORNING

REACTIONS (8)
  - Sciatica [Unknown]
  - Spondylitis [Unknown]
  - Wrong technique in product usage process [Unknown]
  - Intervertebral disc protrusion [Unknown]
  - Procedural pain [Unknown]
  - Back pain [Unknown]
  - Feeling abnormal [Unknown]
  - Drug dose omission [Unknown]

NARRATIVE: CASE EVENT DATE: 1999
